FAERS Safety Report 8829324 (Version 2)
Quarter: 2013Q2

REPORT INFORMATION
  Report Type: Spontaneous
  Country: US (occurrence: US)
  Receive Date: 20121008
  Receipt Date: 20130610
  Transmission Date: 20140414
  Serious: Yes (Hospitalization)
  Sender: FDA-Public Use
  Company Number: US-BAYER-2012-103004

PATIENT
  Age: 29 Year
  Sex: Female
  Weight: 92.97 kg

DRUGS (4)
  1. GIANVI [Suspect]
     Indication: CONTRACEPTION
     Dosage: UNK
     Dates: start: 20110328, end: 20120105
  2. METFORMIN [Concomitant]
     Indication: WEIGHT DECREASED
     Dosage: 500 MG, UNK
  3. NORVASC [Concomitant]
  4. PRO-AIR [Concomitant]
     Dosage: UNK
     Dates: start: 19820805

REACTIONS (4)
  - Pulmonary embolism [None]
  - Deep vein thrombosis [Recovered/Resolved]
  - Pain in extremity [Recovered/Resolved]
  - Dyspnoea [None]
